FAERS Safety Report 6075100-3 (Version None)
Quarter: 2009Q1

REPORT INFORMATION
  Report Type: 
  Country: None (occurrence: None)
  Receive Date: 20090210
  Receipt Date: 20090210
  Transmission Date: 20090719
  Serious: Yes (Death, Hospitalization)
  Sender: FDA-Public Use
  Company Number: None

PATIENT
  Age: 85 Year
  Sex: Male
  Weight: 115 kg

DRUGS (1)
  1. ASPIRIN [Suspect]
     Indication: ATRIAL FIBRILLATION
     Dosage: 325 MG EVERY DAY PO
     Route: 048
     Dates: start: 20060609, end: 20090128

REACTIONS (5)
  - ABDOMINAL ABSCESS [None]
  - CONSTIPATION [None]
  - DUODENAL ULCER PERFORATION [None]
  - GENERAL PHYSICAL HEALTH DETERIORATION [None]
  - SPLENIC INJURY [None]
